FAERS Safety Report 4293466-1 (Version None)
Quarter: 2004Q1

REPORT INFORMATION
  Report Type: 
  Country: None (occurrence: None)
  Receive Date: 20040126
  Receipt Date: 20030926
  Transmission Date: 20041129
  Serious: No
  Sender: FDA-Public Use
  Company Number: USA030844496

PATIENT
  Age: 90 Year
  Sex: Male

DRUGS (8)
  1. FORTEO [Suspect]
     Dates: start: 20030401
  2. FOSAMAX [Concomitant]
  3. MULTIVITAMIN AND MINERAL SUPPLEMENT [Concomitant]
  4. OSCAL 500-D [Concomitant]
  5. PROSCAR [Concomitant]
  6. TESTOSTERONE [Concomitant]
  7. SAW PALMETTO [Concomitant]
  8. MILK OF MAGNESIA TAB [Concomitant]

REACTIONS (1)
  - URINE ANALYSIS ABNORMAL [None]
